FAERS Safety Report 6536683-X (Version None)
Quarter: 2010Q1

REPORT INFORMATION
  Report Type: 
  Country: None (occurrence: None)
  Receive Date: 20100113
  Receipt Date: 20100104
  Transmission Date: 20100710
  Serious: Yes (Death)
  Sender: FDA-Public Use
  Company Number: US-PFIZER INC-2010001612

PATIENT
  Age: 23 Year
  Sex: Male

DRUGS (5)
  1. ALPRAZOLAM [Suspect]
     Dosage: UNK
     Route: 048
     Dates: start: 20080101
  2. CITALOPRAM [Suspect]
     Dosage: UNK
     Route: 048
     Dates: start: 20080101
  3. METHADONE [Suspect]
     Route: 048
  4. ACEPROMAZINE [Suspect]
     Route: 048
  5. LSD [Suspect]
     Route: 048

REACTIONS (3)
  - CARDIAC ARREST [None]
  - DRUG ABUSE [None]
  - RESPIRATORY ARREST [None]
